FAERS Safety Report 6171140-4 (Version None)
Quarter: 2009Q2

REPORT INFORMATION
  Report Type: 
  Country: None (occurrence: None)
  Receive Date: 20090428
  Receipt Date: 20090428
  Transmission Date: 20091009
  Serious: No
  Sender: FDA-Public Use
  Company Number: None

PATIENT
  Age: 55 Year
  Sex: Male
  Weight: 86.1834 kg

DRUGS (2)
  1. LEVAQUIN [Suspect]
     Indication: EPIDIDYMITIS
     Dosage: 1 DAILY PO, 7 DAILY DOSES
     Route: 048
     Dates: start: 20090327, end: 20090402
  2. LEVAQUIN [Suspect]
     Indication: EPIDIDYMITIS
     Dosage: 1 DAILY PO, 7 DAILY DOSES
     Route: 048
     Dates: start: 20090416, end: 20090423

REACTIONS (3)
  - ARTHRALGIA [None]
  - HYPOAESTHESIA [None]
  - LETHARGY [None]
